FAERS Safety Report 4825604-3 (Version None)
Quarter: 2005Q4

REPORT INFORMATION
  Report Type: 
  Country: None (occurrence: None)
  Receive Date: 20051111
  Receipt Date: 20051012
  Transmission Date: 20060501
  Serious: No
  Sender: FDA-Public Use
  Company Number: US-GLAXOSMITHKLINE-A0578011A

PATIENT
  Age: 85 Year
  Sex: Male

DRUGS (5)
  1. AVODART [Suspect]
     Indication: BENIGN PROSTATIC HYPERPLASIA
     Dosage: 1CAP PER DAY
     Route: 048
     Dates: start: 20040801
  2. ISOSORBIDE [Concomitant]
  3. ASPIRIN [Concomitant]
  4. LASIX [Concomitant]
  5. TOPROL-XL [Concomitant]

REACTIONS (2)
  - DYSPEPSIA [None]
  - ORAL DISCOMFORT [None]
